FAERS Safety Report 6738451-2 (Version None)
Quarter: 2010Q2

REPORT INFORMATION
  Report Type: 
  Country: None (occurrence: None)
  Receive Date: 20100520
  Receipt Date: 20100507
  Transmission Date: 20101027
  Serious: Yes (Other)
  Sender: FDA-Public Use
  Company Number: IPC201005-000128

PATIENT
  Age: 65 Year
  Sex: Female
  Weight: 76.2043 kg

DRUGS (11)
  1. METOPROLOL TARTRATE [Suspect]
     Indication: BLOOD CHOLESTEROL INCREASED
     Dosage: ORAL
     Route: 048
     Dates: start: 20091101
  2. METOPROLOL TARTRATE [Suspect]
     Indication: HYPERTENSION
     Dosage: ORAL
     Route: 048
     Dates: start: 20091101
  3. CYTOMEL [Concomitant]
  4. LEVOTHYROXINE SODIUM [Concomitant]
  5. ESTRADIOL [Concomitant]
  6. CYCLOBENZAPRINE [Concomitant]
  7. LISINOPRIL [Concomitant]
  8. LOVAZA [Concomitant]
  9. ZOCOR [Concomitant]
  10. SIMVASTATIN [Concomitant]
  11. PLAQUENIL [Concomitant]

REACTIONS (7)
  - ARTHRALGIA [None]
  - FATIGUE [None]
  - HYPERSENSITIVITY [None]
  - MALAISE [None]
  - PYREXIA [None]
  - RASH [None]
  - REACTION TO DRUG EXCIPIENTS [None]
